FAERS Safety Report 22325487 (Version 2)
Quarter: 2023Q2

REPORT INFORMATION
  Report Type: Spontaneous
  Country: US (occurrence: US)
  Receive Date: 20230516
  Receipt Date: 20230524
  Transmission Date: 20230721
  Serious: No
  Sender: FDA-Public Use
  Company Number: US-PFIZER INC-PV202300086287

PATIENT
  Age: 43 Year
  Sex: Female

DRUGS (2)
  1. IBRANCE [Suspect]
     Active Substance: PALBOCICLIB
     Dosage: 75 MG, CYCLIC (1 TABLET DAILY ON DAYS 1 THROUGH 21 OF A 28 DAY CYCLE)
     Route: 048
     Dates: start: 202110
  2. FASLODEX [Concomitant]
     Active Substance: FULVESTRANT
     Dosage: UNK

REACTIONS (1)
  - Neoplasm progression [Not Recovered/Not Resolved]
